FAERS Safety Report 4668262-3 (Version None)
Quarter: 2005Q2

REPORT INFORMATION
  Report Type: 
  Country: None (occurrence: None)
  Receive Date: 20050523
  Receipt Date: 20040628
  Transmission Date: 20051028
  Serious: Yes (Death, Other)
  Sender: FDA-Public Use
  Company Number: PHBS2004NO17494

PATIENT
  Age: 49 Year
  Sex: Female

DRUGS (15)
  1. ZOMETA [Suspect]
     Indication: METASTASES TO BONE
     Dosage: 4 MG, QMO
     Dates: start: 20020901, end: 20040501
  2. CYCLOPHOSPHAMIDE [Concomitant]
     Dates: start: 20020801, end: 20021201
  3. FLUOROURACIL [Concomitant]
     Dates: start: 20020801, end: 20021201
  4. EPIRUBICIN [Concomitant]
     Dates: start: 20020801, end: 20021201
  5. TAMOXIFEN [Concomitant]
     Dosage: 20 MG/D
     Dates: start: 19950101, end: 20000101
  6. MEGACE [Concomitant]
     Dosage: 160 MG/D
     Dates: start: 20010101
  7. ARIMIDEX [Concomitant]
     Dosage: 1 MG/D
     Dates: start: 20021201
  8. FONTEX [Concomitant]
     Indication: DEPRESSION
  9. THYROXIN-NATRIUM [Concomitant]
     Indication: HYPOTHYROIDISM
  10. OXYCONTIN [Concomitant]
     Indication: PAIN
  11. AREDIA [Suspect]
     Indication: METASTASES TO BONE
     Dosage: 90 MG, QMO
     Dates: start: 20010901, end: 20020901
  12. CYCLOPHOSPHAMIDE [Concomitant]
     Dates: start: 19950101
  13. FLUOROURACIL [Concomitant]
     Dates: start: 19950101
  14. METHOTREXATE [Concomitant]
     Dates: start: 19950101
  15. TAXOL [Concomitant]
     Dosage: 150 MG/D
     Route: 065
     Dates: start: 20010701

REACTIONS (7)
  - EATING DISORDER [None]
  - GINGIVAL DISORDER [None]
  - JAW DISORDER [None]
  - MALIGNANT NEOPLASM PROGRESSION [None]
  - ORAL INFECTION [None]
  - OSTEONECROSIS [None]
  - TOOTH LOSS [None]
